FAERS Safety Report 7301329-X (Version None)
Quarter: 2011Q1

REPORT INFORMATION
  Report Type: 
  Country: None (occurrence: None)
  Receive Date: 20110113
  Receipt Date: 20101015
  Transmission Date: 20110831
  Serious: No
  Sender: FDA-Public Use
  Company Number: US-001350

PATIENT
  Sex: Female
  Weight: 49.5328 kg

DRUGS (9)
  1. SEROQUEL [Concomitant]
  2. CLONAZEPAM [Concomitant]
  3. NEURONTIN [Concomitant]
  4. CARBATROL [Concomitant]
  5. RANITIDINE [Concomitant]
  6. KUVAN [Suspect]
     Indication: PHENYLKETONURIA
     Dosage: (300 MG QD ORAL) (400 MG QD ORAL)
     Route: 048
     Dates: start: 20100701, end: 20100824
  7. KUVAN [Suspect]
     Indication: PHENYLKETONURIA
     Dosage: (300 MG QD ORAL) (400 MG QD ORAL)
     Route: 048
     Dates: start: 20100825
  8. FIBRE, DIETARY [Concomitant]
  9. MIRALAX [Concomitant]

REACTIONS (3)
  - WEIGHT INCREASED [None]
  - BLOOD CREATINE PHOSPHOKINASE INCREASED [None]
  - DIARRHOEA [None]
